FAERS Safety Report 10885304 (Version 3)
Quarter: 2015Q2

REPORT INFORMATION
  Report Type: Report from Study
  Country: IL (occurrence: IL)
  Receive Date: 20150304
  Receipt Date: 20150601
  Transmission Date: 20150821
  Serious: No
  Sender: FDA-Public Use
  Company Number: PHHY2015IL025495

PATIENT
  Sex: Female

DRUGS (1)
  1. TASIGNA [Suspect]
     Active Substance: NILOTINIB
     Indication: PRODUCT USED FOR UNKNOWN INDICATION
     Dosage: FOETAL EXPOSURE VIA PARTNER
     Route: 050

REACTIONS (2)
  - Normal newborn [Unknown]
  - Exposure via father [Unknown]

NARRATIVE: CASE EVENT DATE: 20150225
